FAERS Safety Report 9182476 (Version 1)
Quarter: 2013Q1

REPORT INFORMATION
  Report Type: Spontaneous
  Country: US (occurrence: US)
  Receive Date: 20130322
  Receipt Date: 20130322
  Transmission Date: 20140127
  Serious: No
  Sender: FDA-Public Use
  Company Number: US-BRISTOL-MYERS SQUIBB COMPANY-16754327

PATIENT
  Sex: Male

DRUGS (1)
  1. ERBITUX [Suspect]
     Dosage: TWO WEEKS AGO,1ST INF
     Dates: start: 201206, end: 2012

REACTIONS (1)
  - Infusion related reaction [Recovered/Resolved]
